FAERS Safety Report 17424087 (Version 1)
Quarter: 2020Q1

REPORT INFORMATION
  Report Type: Spontaneous
  Country: US (occurrence: US)
  Receive Date: 20200217
  Receipt Date: 20200217
  Transmission Date: 20200409
  Serious: Yes (Other)
  Sender: FDA-Public Use
  Company Number: US-DRREDDYS-USA/USA/20/0119719

PATIENT
  Age: 29 Year
  Sex: Female

DRUGS (2)
  1. ZENATANE [Suspect]
     Active Substance: ISOTRETINOIN
     Indication: PRODUCT USED FOR UNKNOWN INDICATION
     Dosage: ISSUED ON 12 DECEMBER 2019 12:00:00 AM AND ON 14 JANUARY 2019 12:00:00 AM
     Route: 048
     Dates: start: 20191212
  2. ZENATANE [Suspect]
     Active Substance: ISOTRETINOIN
     Dosage: ISSUED ON 14 JANUARY 2020 12:00:00 AM
     Route: 048

REACTIONS (1)
  - Exposure during pregnancy [Unknown]

NARRATIVE: CASE EVENT DATE: 20200210
